FAERS Safety Report 22055512 (Version 2)
Quarter: 2023Q1

REPORT INFORMATION
  Report Type: Spontaneous
  Country: US (occurrence: US)
  Receive Date: 20230302
  Receipt Date: 20230317
  Transmission Date: 20230417
  Serious: Yes (Other)
  Sender: FDA-Public Use
  Company Number: US-TEVA-2023-US-2859638

PATIENT
  Age: 73 Year
  Sex: Male

DRUGS (2)
  1. CABERGOLINE [Suspect]
     Active Substance: CABERGOLINE
     Indication: Prolactin-producing pituitary tumour
     Dosage: 0.5MG TWO TIMES PER WEEK
     Route: 065
     Dates: start: 2005
  2. CABERGOLINE [Suspect]
     Active Substance: CABERGOLINE
     Dosage: 0.25MG TWO TIMES PER WEEK
     Route: 065
     Dates: end: 2022

REACTIONS (3)
  - Cardiac valve disease [Unknown]
  - Aortic valve disease [Unknown]
  - Mitral valve disease [Unknown]
